FAERS Safety Report 13751199 (Version 1)
Quarter: 2017Q3

REPORT INFORMATION
  Report Type: Spontaneous
  Country: US (occurrence: US)
  Receive Date: 20170713
  Receipt Date: 20170713
  Transmission Date: 20171127
  Serious: Yes (Other)
  Sender: FDA-Public Use
  Company Number: US-MEDA-2017060077

PATIENT
  Age: 7 Month
  Sex: Male

DRUGS (11)
  1. FELBATOL [Suspect]
     Active Substance: FELBAMATE
     Dates: start: 20170130, end: 20170205
  2. PREDNISOLONE. [Concomitant]
     Active Substance: PREDNISOLONE
  3. SABRIL [Concomitant]
     Active Substance: VIGABATRIN
  4. ONFI [Concomitant]
     Active Substance: CLOBAZAM
     Dates: start: 20170116, end: 2017
  5. PREDNISOLONE. [Concomitant]
     Active Substance: PREDNISOLONE
     Dates: start: 20170114, end: 2017
  6. NYSTATIN. [Concomitant]
     Active Substance: NYSTATIN
  7. ZANTAC [Concomitant]
     Active Substance: RANITIDINE HYDROCHLORIDE
  8. KEPPRA [Concomitant]
     Active Substance: LEVETIRACETAM
     Indication: SEIZURE
  9. ONFI [Concomitant]
     Active Substance: CLOBAZAM
     Dates: end: 20170208
  10. ACTH [Concomitant]
     Active Substance: CORTICOTROPIN
  11. PYRIDOXINE [Concomitant]
     Active Substance: PYRIDOXINE

REACTIONS (4)
  - Seizure [Recovered/Resolved]
  - Infantile spasms [Recovered/Resolved]
  - Condition aggravated [Recovered/Resolved]
  - Depressed level of consciousness [Recovered/Resolved]

NARRATIVE: CASE EVENT DATE: 2017
